FAERS Safety Report 10689590 (Version 3)
Quarter: 2015Q1

REPORT INFORMATION
  Report Type: Spontaneous
  Country: US (occurrence: US)
  Receive Date: 20150105
  Receipt Date: 20150312
  Transmission Date: 20150720
  Serious: Yes (Hospitalization)
  Sender: FDA-Public Use
  Company Number: US-PFIZER INC-2014362213

PATIENT
  Age: 62 Year
  Sex: Female

DRUGS (8)
  1. LIPITOR [Suspect]
     Active Substance: ATORVASTATIN CALCIUM
     Indication: BLOOD CHOLESTEROL INCREASED
     Dosage: UNK
  2. NIASPAN [Suspect]
     Active Substance: NIACIN
     Indication: BLOOD CHOLESTEROL INCREASED
     Dosage: UNK
  3. METHOCARBAMOL. [Suspect]
     Active Substance: METHOCARBAMOL
     Dosage: UNK
  4. ETODOLAC. [Suspect]
     Active Substance: ETODOLAC
     Dosage: UNK
  5. REQUIN [Suspect]
     Active Substance: QUININE HYDROCHLORIDE
     Dosage: UNK
  6. DICLOFENAC POTASSIUM. [Suspect]
     Active Substance: DICLOFENAC POTASSIUM
     Dosage: UNK
  7. VIOXX [Suspect]
     Active Substance: ROFECOXIB
     Indication: PAIN IN EXTREMITY
     Dosage: UNK
  8. LAMISIL [Suspect]
     Active Substance: TERBINAFINE HYDROCHLORIDE
     Indication: LOCALISED INFECTION
     Dosage: UNK

REACTIONS (4)
  - Rash pruritic [Recovered/Resolved]
  - Dyspnoea [Recovered/Resolved]
  - Drug hypersensitivity [Recovered/Resolved]
  - Nausea [Recovered/Resolved]
